FAERS Safety Report 5647547-8 (Version None)
Quarter: 2008Q1

REPORT INFORMATION
  Report Type: 
  Country: None (occurrence: None)
  Receive Date: 20080131
  Receipt Date: 20070928
  Transmission Date: 20080703
  Serious: No
  Sender: FDA-Public Use
  Company Number: 163-21880-07100006

PATIENT
  Age: 66 Year
  Sex: Male
  Weight: 59.8748 kg

DRUGS (12)
  1. REVLIMID [Suspect]
     Indication: MULTIPLE MYELOMA
     Dosage: 24 MG, 1 IN 1 D, ORAL ; 15 MG, 3 IN 1 D, ORAL
     Route: 048
     Dates: start: 20070830, end: 20070901
  2. REVLIMID [Suspect]
     Indication: MULTIPLE MYELOMA
     Dosage: 24 MG, 1 IN 1 D, ORAL ; 15 MG, 3 IN 1 D, ORAL
     Route: 048
     Dates: start: 20070928
  3. DEXAMETHASONE TAB [Concomitant]
  4. FLOMAX [Concomitant]
  5. HYDROCORTISONE [Concomitant]
  6. AVELOX [Concomitant]
  7. HYDROMORPHONE HCL [Concomitant]
  8. PHYTONADIONE [Concomitant]
  9. LOVENOX [Concomitant]
  10. WARFARIN SODIUM [Concomitant]
  11. LASIX [Concomitant]
  12. ZOMETA [Concomitant]

REACTIONS (4)
  - BACK PAIN [None]
  - DISEASE PROGRESSION [None]
  - PAIN [None]
  - TREMOR [None]
